FAERS Safety Report 23928749 (Version 2)
Quarter: 2025Q3

REPORT INFORMATION
  Report Type: Spontaneous
  Country: US (occurrence: US)
  Receive Date: 20240531
  Receipt Date: 20250703
  Transmission Date: 20251020
  Serious: No
  Sender: RADIUS PHARM
  Company Number: US-RADIUS HEALTH INC.-2024US000289

PATIENT
  Sex: Male

DRUGS (1)
  1. TYMLOS [Suspect]
     Active Substance: ABALOPARATIDE
     Indication: Product used for unknown indication
     Route: 058
     Dates: start: 20230725

REACTIONS (5)
  - Bone pain [Recovered/Resolved]
  - Loss of personal independence in daily activities [Recovered/Resolved]
  - Product dose omission issue [Unknown]
  - Headache [Unknown]
  - Arthralgia [Recovered/Resolved]
